FAERS Safety Report 5445035-5 (Version None)
Quarter: 2007Q3

REPORT INFORMATION
  Report Type: 
  Country: None (occurrence: None)
  Receive Date: 20070906
  Receipt Date: 20070827
  Transmission Date: 20080115
  Serious: Yes (Hospitalization)
  Sender: FDA-Public Use
  Company Number: US-ELI_LILLY_AND_COMPANY-US200708006522

PATIENT
  Age: 35 Year
  Sex: Female

DRUGS (3)
  1. CYMBALTA [Suspect]
     Indication: BIPOLAR DISORDER
     Dosage: 60 MG, UNK
  2. LAMICTAL [Concomitant]
     Indication: BIPOLAR DISORDER
  3. ATIVAN [Concomitant]

REACTIONS (2)
  - OVERDOSE [None]
  - RESPIRATORY DEPRESSION [None]
